FAERS Safety Report 25940228 (Version 3)
Quarter: 2025Q4

REPORT INFORMATION
  Report Type: Spontaneous
  Country: US (occurrence: US)
  Receive Date: 20251020
  Receipt Date: 20251202
  Transmission Date: 20260117
  Serious: No
  Sender: SANDOZ
  Company Number: US-SANDOZ-SDZ2025US076244

PATIENT
  Sex: Female

DRUGS (1)
  1. ESTRADIOL [Suspect]
     Active Substance: ESTRADIOL
     Indication: Product used for unknown indication
     Dosage: UNK UNK, Q2W
     Route: 062
     Dates: start: 2022

REACTIONS (2)
  - Circumstance or information capable of leading to device use error [Unknown]
  - Product quality issue [Unknown]

NARRATIVE: CASE EVENT DATE: 20251001
